FAERS Safety Report 5833840-2 (Version None)
Quarter: 2008Q3

REPORT INFORMATION
  Report Type: 
  Country: None (occurrence: None)
  Receive Date: 20080801
  Receipt Date: 20080801
  Transmission Date: 20090109
  Serious: Yes (Death)
  Sender: FDA-Public Use
  Company Number: None

PATIENT
  Sex: Male
  Weight: 77.1115 kg

DRUGS (6)
  1. CHANTIX [Suspect]
     Indication: SMOKING CESSATION THERAPY
     Dosage: 1 MG BID PO, 2-3 MONTHS
     Route: 048
     Dates: start: 20080214, end: 20080519
  2. LIPITOR [Concomitant]
  3. DICLOFENAC SODIUM [Concomitant]
  4. ENALAPRIL MALEATE [Concomitant]
  5. ADVAIR DISKUS 100/50 [Concomitant]
  6. SPIRIVA [Concomitant]

REACTIONS (2)
  - COMPLETED SUICIDE [None]
  - HYPERTENSION [None]
